FAERS Safety Report 19112257 (Version 2)
Quarter: 2021Q3

REPORT INFORMATION
  Report Type: Report from Study
  Country: JP (occurrence: JP)
  Receive Date: 20210408
  Receipt Date: 20210707
  Transmission Date: 20211014
  Serious: Yes (Life-Threatening, Hospitalization, Other)
  Sender: FDA-Public Use
  Company Number: JP-PFIZER INC-2021101794

PATIENT
  Age: 68 Year
  Sex: Male
  Weight: 61.4 kg

DRUGS (10)
  1. METFORMIN HYDROCHLORIDE. [Concomitant]
     Active Substance: METFORMIN HYDROCHLORIDE
     Dosage: UNK
  2. LOPERAMIDE [Suspect]
     Active Substance: LOPERAMIDE
     Indication: DIARRHOEA
  3. FEBURIC [Suspect]
     Active Substance: FEBUXOSTAT
     Indication: SUPPORTIVE CARE
     Dosage: 60 MG (3 TABLETS), 1X/DAY
     Route: 048
     Dates: start: 20210116, end: 20210122
  4. HIRUDOID [Concomitant]
     Active Substance: GLYCOSAMINOGLYCANS
     Dosage: 0.3%
  5. ALLOMIDON [Concomitant]
     Dosage: UNK
  6. LOPERAMIDE [Suspect]
     Active Substance: LOPERAMIDE
     Indication: SUPPORTIVE CARE
     Dosage: 1 MG, AS NEEDED
     Route: 048
     Dates: start: 20210121, end: 20210126
  7. BOSULIF [Suspect]
     Active Substance: BOSUTINIB MONOHYDRATE
     Indication: CHRONIC MYELOID LEUKAEMIA
     Dosage: 400 MG, 1X/DAY
     Route: 048
     Dates: start: 20210118, end: 20210126
  8. LEVOFLOXACIN DSEP [Concomitant]
     Active Substance: LEVOFLOXACIN
     Dosage: UNK
     Dates: start: 20210125, end: 20210126
  9. NIFEDIPINE NICHIIKO [Concomitant]
     Dosage: 20 MG, DAILY
     Route: 048
     Dates: start: 20061003, end: 20210127
  10. INISYNC [Concomitant]
     Active Substance: ALOGLIPTIN BENZOATE\METFORMIN HYDROCHLORIDE
     Dosage: 1 DF, DAILY
     Route: 048
     Dates: start: 20181004, end: 20210127

REACTIONS (1)
  - Stevens-Johnson syndrome [Recovered/Resolved]

NARRATIVE: CASE EVENT DATE: 20210126
